FAERS Safety Report 5149578-3 (Version None)
Quarter: 2006Q4

REPORT INFORMATION
  Report Type: 
  Country: None (occurrence: None)
  Receive Date: 20061113
  Receipt Date: 20060515
  Transmission Date: 20070319
  Serious: No
  Sender: FDA-Public Use
  Company Number: US-GLAXOSMITHKLINE-A0605595A

PATIENT
  Age: 59 Year
  Sex: Female

DRUGS (2)
  1. COREG [Suspect]
     Indication: DRUG USE FOR UNKNOWN INDICATION
     Dosage: 3.125MG TWICE PER DAY
     Route: 048
     Dates: start: 20051001
  2. ASPIRIN [Concomitant]

REACTIONS (3)
  - DYSPEPSIA [None]
  - STOMACH DISCOMFORT [None]
  - WEIGHT INCREASED [None]
